FAERS Safety Report 7288390-6 (Version None)
Quarter: 2011Q1

REPORT INFORMATION
  Report Type: 
  Country: None (occurrence: None)
  Receive Date: 20110211
  Receipt Date: 20110209
  Transmission Date: 20110831
  Serious: Yes (Death, Hospitalization)
  Sender: FDA-Public Use
  Company Number: A0779466A

PATIENT
  Age: 56 Year
  Sex: Male

DRUGS (6)
  1. AVANDAMET [Suspect]
     Indication: TYPE 2 DIABETES MELLITUS
     Route: 048
     Dates: start: 20040913, end: 20041201
  2. AVANDIA [Suspect]
     Indication: TYPE 2 DIABETES MELLITUS
     Dosage: 4MG PER DAY
     Route: 048
     Dates: start: 20050308, end: 20060115
  3. LOTREL [Concomitant]
  4. ZOCOR [Concomitant]
  5. BENAZEPRIL [Concomitant]
  6. LABETALOL [Concomitant]

REACTIONS (1)
  - MYOCARDIAL INFARCTION [None]
